FAERS Safety Report 4969570-9 (Version None)
Quarter: 2006Q2

REPORT INFORMATION
  Report Type: 
  Country: None (occurrence: None)
  Receive Date: 20060406
  Receipt Date: 20060328
  Transmission Date: 20061013
  Serious: Yes (Hospitalization)
  Sender: FDA-Public Use
  Company Number: 2006-03-2041

PATIENT
  Sex: Female

DRUGS (3)
  1. PEG-INTRON [Suspect]
     Indication: HEPATITIS C
  2. REBETOL [Suspect]
     Indication: HEPATITIS C
     Dosage: ORAL
     Route: 048
  3. ANTIDEPRESSANTS (NOS) [Concomitant]

REACTIONS (4)
  - DYSKINESIA [None]
  - SPEECH DISORDER [None]
  - THINKING ABNORMAL [None]
  - TREMOR [None]
